FAERS Safety Report 9346510 (Version 1)
Quarter: 2013Q2

REPORT INFORMATION
  Report Type: Spontaneous
  Country: US (occurrence: US)
  Receive Date: 20130613
  Receipt Date: 20130613
  Transmission Date: 20140414
  Serious: Yes (Other)
  Sender: FDA-Public Use
  Company Number: US-ACTAVIS-2013-10075

PATIENT
  Age: 16 Year
  Sex: Female

DRUGS (13)
  1. OLANZAPINE (UNKNOWN) [Suspect]
     Indication: ANTIEMETIC SUPPORTIVE CARE
     Dosage: 2.5 - 5 MG
     Route: 065
  2. QUETIAPINE (UNKNOWN) [Suspect]
     Indication: DEPRESSION
     Dosage: 50 MG, DAILY
     Route: 065
  3. QUETIAPINE (UNKNOWN) [Suspect]
     Dosage: 62.5 MG, DAILY
     Route: 065
  4. METHOTREXATE (UNKNOWN) [Suspect]
     Indication: HODGKIN^S DISEASE STAGE IV
     Dosage: UNK
     Route: 065
  5. VINCRISTINE (UNKNOWN) [Suspect]
     Indication: HODGKIN^S DISEASE STAGE IV
     Dosage: UNK
     Route: 065
  6. PREDNISOLONE (UNKNOWN) [Suspect]
     Indication: HODGKIN^S DISEASE STAGE IV
     Dosage: UNK
     Route: 065
  7. PROCARBAZINE [Suspect]
     Indication: HODGKIN^S DISEASE STAGE IV
     Dosage: UNK
     Route: 065
  8. DEXAMETHASONE [Concomitant]
     Indication: PRODUCT USED FOR UNKNOWN INDICATION
     Dosage: UNK
     Route: 065
  9. PROMETHAZINE [Concomitant]
     Indication: PRODUCT USED FOR UNKNOWN INDICATION
     Dosage: UNK
     Route: 065
  10. POLYETHYLENE GLYCOL [Concomitant]
     Indication: PRODUCT USED FOR UNKNOWN INDICATION
     Dosage: UNK
     Route: 065
  11. GABAPENTIN [Concomitant]
     Indication: PRODUCT USED FOR UNKNOWN INDICATION
     Dosage: UNK
     Route: 065
  12. ESOMEPRAZOLE [Concomitant]
     Indication: PRODUCT USED FOR UNKNOWN INDICATION
     Dosage: UNK
     Route: 065
  13. ONDANSETRON [Concomitant]
     Indication: PRODUCT USED FOR UNKNOWN INDICATION
     Dosage: UNK
     Route: 065

REACTIONS (11)
  - Depression [Recovering/Resolving]
  - Anxiety [Recovering/Resolving]
  - Electrocardiogram QT prolonged [Unknown]
  - Sinus tachycardia [Unknown]
  - Somnolence [Unknown]
  - Fatigue [Unknown]
  - Apathy [Unknown]
  - Nausea [Unknown]
  - Weight increased [Unknown]
  - Alopecia [Unknown]
  - Off label use [Unknown]
